FAERS Safety Report 5477129-2 (Version None)
Quarter: 2007Q4

REPORT INFORMATION
  Report Type: 
  Country: None (occurrence: None)
  Receive Date: 20071004
  Receipt Date: 20071001
  Transmission Date: 20080405
  Serious: Yes (Hospitalization)
  Sender: FDA-Public Use
  Company Number: FR-WYE-G00402507

PATIENT
  Sex: Female

DRUGS (7)
  1. EFFEXOR XR [Suspect]
     Dosage: UNKNOWN
     Route: 048
  2. ACTISKENAN [Suspect]
     Indication: PAIN
     Dosage: UNKNOWN
     Route: 048
  3. PROFENID [Concomitant]
     Indication: MUSCULOSKELETAL PAIN
     Dosage: 1 AND 2 (UNSPECIFIED FORM) TOTAL DAILY
     Route: 048
  4. LYRICA [Concomitant]
     Indication: ANXIETY DISORDER
     Dosage: UNKNOWN
     Route: 048
  5. LAROXYL [Concomitant]
     Indication: PAIN
     Dosage: UNKNOWN
     Route: 048
  6. SKENAN [Suspect]
     Indication: PAIN
     Dosage: UNKNOWN
     Route: 048
  7. EPITOMAX [Concomitant]
     Indication: MIGRAINE
     Dosage: UNKNOWN
     Route: 048

REACTIONS (1)
  - DRUG ABUSER [None]
